FAERS Safety Report 23791189 (Version 1)
Quarter: 2024Q2

REPORT INFORMATION
  Report Type: Spontaneous
  Country: US (occurrence: US)
  Receive Date: 20240428
  Receipt Date: 20240428
  Transmission Date: 20240715
  Serious: No
  Sender: FDA-Public Use
  Company Number: US-Ironshore Pharmaceuticals Inc.-IRON20240757

PATIENT
  Sex: Female

DRUGS (2)
  1. JORNAY PM EXTENDED-RELEASE [Suspect]
     Active Substance: METHYLPHENIDATE HYDROCHLORIDE
     Indication: Attention deficit hyperactivity disorder
     Dosage: 40 OR 60 MG
     Route: 048
     Dates: start: 202402
  2. PROZAC [Concomitant]
     Active Substance: FLUOXETINE HYDROCHLORIDE
     Indication: Product used for unknown indication

REACTIONS (1)
  - Aggression [Unknown]

NARRATIVE: CASE EVENT DATE: 20240201
